FAERS Safety Report 15180211 (Version 25)
Quarter: 2021Q1

REPORT INFORMATION
  Report Type: Report from Study
  Country: GB (occurrence: GB)
  Receive Date: 20180723
  Receipt Date: 20210104
  Transmission Date: 20210419
  Serious: Yes (Hospitalization, Other)
  Sender: FDA-Public Use
  Company Number: GB-BRISTOL-MYERS SQUIBB COMPANY-BMS-2017-037788

PATIENT
  Sex: Female

DRUGS (8)
  1. ABATACEPT [Suspect]
     Active Substance: ABATACEPT
     Indication: PSORIATIC ARTHROPATHY
     Dosage: 125 MILLIGRAM, QWK
     Route: 058
     Dates: start: 201602
  2. ABATACEPT [Suspect]
     Active Substance: ABATACEPT
     Dosage: 125 MILLIGRAM, QWK
     Route: 058
     Dates: start: 20160303
  3. PARACETAMOL [Concomitant]
     Active Substance: ACETAMINOPHEN
     Indication: PRODUCT USED FOR UNKNOWN INDICATION
     Route: 065
  4. METHOTREXATE. [Concomitant]
     Active Substance: METHOTREXATE
     Indication: RHEUMATOID ARTHRITIS
     Dosage: 10 MILLIGRAM, QWK
     Route: 065
  5. ABATACEPT [Suspect]
     Active Substance: ABATACEPT
     Indication: RHEUMATOID ARTHRITIS
     Dosage: 125 MILLIGRAM, QWK
     Route: 058
     Dates: start: 20160229
  6. FOLIC ACID. [Concomitant]
     Active Substance: FOLIC ACID
     Indication: PRODUCT USED FOR UNKNOWN INDICATION
     Route: 065
  7. FOLIC ACID. [Concomitant]
     Active Substance: FOLIC ACID
     Route: 065
  8. PARACETAMOL [Concomitant]
     Active Substance: ACETAMINOPHEN
     Route: 065

REACTIONS (15)
  - Dementia [Unknown]
  - Joint swelling [Unknown]
  - Neoplasm malignant [Unknown]
  - Infection [Unknown]
  - Off label use [Unknown]
  - Lower respiratory tract infection [Unknown]
  - Tooth abscess [Unknown]
  - Photodermatosis [Unknown]
  - Localised infection [Unknown]
  - Urinary incontinence [Unknown]
  - Arthropathy [Unknown]
  - Product dose omission issue [Unknown]
  - Actinic keratosis [Unknown]
  - Urinary tract infection [Recovering/Resolving]
  - Lichenoid keratosis [Unknown]
